FAERS Safety Report 7534726-8 (Version None)
Quarter: 2011Q2

REPORT INFORMATION
  Report Type: 
  Country: None (occurrence: None)
  Receive Date: 20110609
  Receipt Date: 20110425
  Transmission Date: 20111010
  Serious: Yes (Life-Threatening, Other)
  Sender: FDA-Public Use
  Company Number: PHHY2010JP55600

PATIENT
  Sex: Male
  Weight: 60 kg

DRUGS (14)
  1. METOPROLOL TARTRATE [Concomitant]
     Indication: METASTATIC RENAL CELL CARCINOMA
     Dosage: 20 MG, UNK
     Route: 048
  2. AFINITOR [Suspect]
     Indication: METASTATIC RENAL CELL CARCINOMA
     Dosage: 10 MG, DAILY
     Route: 048
     Dates: start: 20100712, end: 20100816
  3. CANDESARTAN CILEXETIL [Concomitant]
     Indication: METASTATIC RENAL CELL CARCINOMA
     Dosage: 4 MG, UNK
     Route: 048
  4. KENTAN [Concomitant]
     Indication: METASTATIC RENAL CELL CARCINOMA
     Dosage: 60 MG, UNK
     Route: 048
  5. AFINITOR [Suspect]
     Dosage: 10 MG, DAILY
     Dates: start: 20101206
  6. ASASION [Concomitant]
     Indication: METASTATIC RENAL CELL CARCINOMA
     Dosage: 0.25 MG, UNK
     Route: 048
  7. SORAFENIB TOSILATE [Concomitant]
     Dosage: 800 MG, UNK
     Route: 048
     Dates: start: 20080618, end: 20100111
  8. CALAN [Concomitant]
     Indication: METASTATIC RENAL CELL CARCINOMA
     Dosage: 1500 MG, UNK
     Route: 048
  9. SUNITINIB MALATE [Concomitant]
     Dosage: 50 MG, UNK
     Route: 048
     Dates: start: 20100112, end: 20100531
  10. FLENIED [Concomitant]
     Indication: METASTATIC RENAL CELL CARCINOMA
     Dosage: 100 MG, UNK
     Route: 048
  11. SELBEX [Concomitant]
     Indication: METASTATIC RENAL CELL CARCINOMA
     Dosage: 150 MG, UNK
     Route: 048
  12. GASUISAN [Concomitant]
     Indication: METASTATIC RENAL CELL CARCINOMA
     Dosage: 20 MG, UNK
     Route: 048
  13. INTERFERON ALFA [Concomitant]
     Dosage: 3000000 IU, UNK
     Dates: start: 19960901
  14. SEVELAMER HYDROCHLORIDE [Concomitant]
     Indication: METASTATIC RENAL CELL CARCINOMA
     Dosage: 1500 MG, UNK
     Route: 048

REACTIONS (4)
  - ANAL ABSCESS [None]
  - STOMATITIS [None]
  - GENERAL PHYSICAL HEALTH DETERIORATION [None]
  - SEPSIS [None]
